FAERS Safety Report 20732398 (Version 5)
Quarter: 2022Q3

REPORT INFORMATION
  Report Type: Spontaneous
  Country: US (occurrence: US)
  Receive Date: 20220420
  Receipt Date: 20220930
  Transmission Date: 20221026
  Serious: Yes (Other)
  Sender: FDA-Public Use
  Company Number: US-PFIZER INC-202200092582

PATIENT
  Age: 77 Year
  Sex: Female

DRUGS (1)
  1. IBRANCE [Suspect]
     Active Substance: PALBOCICLIB
     Indication: Breast cancer female
     Dosage: 125 MG, CYCLIC (TAKE 1 TABLET BY MOUTH DAILY FOR 21 DAYS, THEN OFF FOR 7 DAYS FOR A 28 DAY CYCLE)
     Route: 048
     Dates: start: 20220107

REACTIONS (11)
  - Haemorrhage [Unknown]
  - Product dose omission issue [Unknown]
  - Contusion [Unknown]
  - Dyspnoea [Unknown]
  - Fatigue [Not Recovered/Not Resolved]
  - Bone pain [Unknown]
  - Nausea [Unknown]
  - Oral pain [Recovered/Resolved]
  - Epistaxis [Unknown]
  - White blood cell count decreased [Unknown]
  - Red blood cell count decreased [Unknown]

NARRATIVE: CASE EVENT DATE: 20220101
